FAERS Safety Report 17873709 (Version 2)
Quarter: 2020Q3

REPORT INFORMATION
  Report Type: Report from Study
  Country: None (occurrence: US)
  Receive Date: 20200609
  Receipt Date: 20200715
  Transmission Date: 20201103
  Serious: No
  Sender: FDA-Public Use
  Company Number: US-ABBVIE-20K-163-3434329-00

PATIENT
  Sex: Female
  Weight: 65.83 kg

DRUGS (2)
  1. CREON [Suspect]
     Active Substance: PANCRELIPASE AMYLASE\PANCRELIPASE LIPASE\PANCRELIPASE PROTEASE
     Indication: PANCREATITIS
     Dosage: 10 CAPSULES PER DAY WITH MEAL AND SNACKS
     Route: 048
     Dates: start: 201907
  2. CREON [Suspect]
     Active Substance: PANCRELIPASE AMYLASE\PANCRELIPASE LIPASE\PANCRELIPASE PROTEASE
     Dosage: 10 CAPSULES PER DAY WITH MEAL AND SNACKS
     Route: 048

REACTIONS (1)
  - Intentional product misuse [Unknown]
